FAERS Safety Report 4908618-4 (Version None)
Quarter: 2006Q1

REPORT INFORMATION
  Report Type: 
  Country: None (occurrence: None)
  Receive Date: 20060210
  Receipt Date: 20050919
  Transmission Date: 20060701
  Serious: Yes (Other)
  Sender: FDA-Public Use
  Company Number: US-GLAXOSMITHKLINE-A0574854A

PATIENT
  Age: 36 Year
  Sex: Female
  Weight: 125 kg

DRUGS (18)
  1. PAXIL CR [Suspect]
     Indication: DEPRESSION
     Dosage: 75MG PER DAY
     Route: 048
  2. PAXIL [Suspect]
     Indication: DEPRESSION
     Route: 048
  3. HALCION [Concomitant]
     Indication: INSOMNIA
     Dosage: .25MG AS REQUIRED
     Route: 048
  4. ATIVAN [Concomitant]
     Indication: ANXIETY
     Dosage: 2MG FOUR TIMES PER DAY
     Route: 048
  5. SINGULAIR [Concomitant]
     Indication: ASTHMA
     Dosage: 10MG AT NIGHT
     Route: 048
  6. COMBIVENT [Concomitant]
     Indication: ASTHMA
     Dosage: 2PUFF AS REQUIRED
     Route: 055
  7. SYNTHROID [Concomitant]
     Indication: HYPOTHYROIDISM
     Dosage: .125MG PER DAY
     Route: 048
  8. HUMULIN [Concomitant]
     Dosage: 30UNIT TWICE PER DAY
     Route: 058
  9. LANTUS [Concomitant]
     Dosage: 22UNIT AT NIGHT
     Route: 058
  10. OXYBUTYNIN [Concomitant]
     Indication: BLADDER SPASM
     Dosage: 5MG AS REQUIRED
     Route: 048
  11. DICYCLOMINE [Concomitant]
     Indication: IRRITABLE BOWEL SYNDROME
     Route: 048
  12. PHENERGAN [Concomitant]
     Indication: NAUSEA
     Dosage: 25MG AS REQUIRED
     Route: 048
  13. ORTHO TRI-CYCLEN [Concomitant]
     Route: 048
  14. PAXIL [Concomitant]
     Dosage: 100MG PER DAY
     Route: 048
  15. ALBUTEROL [Concomitant]
     Indication: ASTHMA
     Dosage: 2PUFF AS REQUIRED
     Route: 055
  16. ALLEGRA [Concomitant]
     Indication: MULTIPLE ALLERGIES
     Dosage: 180MG AS REQUIRED
     Route: 048
  17. RHINOCORT [Concomitant]
     Indication: CHRONIC SINUSITIS
     Dosage: 4SPR PER DAY
     Route: 045
  18. FLEXERIL [Concomitant]
     Dosage: 10MG AS REQUIRED
     Route: 048

REACTIONS (3)
  - DEPRESSION [None]
  - DRUG INEFFECTIVE [None]
  - INCORRECT DOSE ADMINISTERED [None]
